FAERS Safety Report 16659698 (Version 4)
Quarter: 2022Q1

REPORT INFORMATION
  Report Type: Spontaneous
  Country: PT (occurrence: PT)
  Receive Date: 20190802
  Receipt Date: 20220324
  Transmission Date: 20220423
  Serious: Yes (Death, Hospitalization, Other)
  Sender: FDA-Public Use
  Company Number: None

PATIENT
  Age: 60 Year
  Sex: Male

DRUGS (6)
  1. DEFLAZACORT [Suspect]
     Active Substance: DEFLAZACORT
     Indication: Product used for unknown indication
     Dosage: 6 MILLIGRAM, ONCE A DAY
     Route: 065
  2. FUROSEMIDE [Suspect]
     Active Substance: FUROSEMIDE
     Indication: Product used for unknown indication
     Dosage: 40 MILLIGRAM, TWO TIMES A DAY
     Route: 042
  3. FUROSEMIDE [Suspect]
     Active Substance: FUROSEMIDE
     Dosage: 120 MILLIGRAM, ONCE A DAY
     Route: 065
  4. NIFEDIPINE [Suspect]
     Active Substance: NIFEDIPINE
     Indication: Product used for unknown indication
     Dosage: 30 MILLIGRAM, ONCE A DAY
     Route: 065
  5. SPIRONOLACTONE [Suspect]
     Active Substance: SPIRONOLACTONE
     Indication: Product used for unknown indication
     Dosage: 25 MILLIGRAM, ONCE A DAY
     Route: 065
  6. METOLAZONE [Suspect]
     Active Substance: METOLAZONE
     Indication: Product used for unknown indication
     Dosage: 2.5 MILLIGRAM, 3 TIMES A DAY
     Route: 065

REACTIONS (17)
  - Orthopnoea [Fatal]
  - Dyspnoea [Fatal]
  - Syncope [Fatal]
  - Generalised oedema [Fatal]
  - Acute pulmonary oedema [Unknown]
  - Atrioventricular block complete [Unknown]
  - Tricuspid valve incompetence [Unknown]
  - Cardiac failure chronic [Unknown]
  - Brain natriuretic peptide increased [Unknown]
  - Crepitations [Unknown]
  - Ventricular dysfunction [Unknown]
  - Myocardial fibrosis [Unknown]
  - Ventricular hypokinesia [Unknown]
  - Oedema [Unknown]
  - Condition aggravated [Unknown]
  - Drug resistance [Unknown]
  - Hypokinesia [Unknown]
